FAERS Safety Report 20917865 (Version 1)
Quarter: 2022Q2

REPORT INFORMATION
  Report Type: Spontaneous
  Country: GB (occurrence: GB)
  Receive Date: 20220606
  Receipt Date: 20220606
  Transmission Date: 20220720
  Serious: Yes (Life-Threatening, Hospitalization, Disabling, Other)
  Sender: FDA-Public Use
  Company Number: GB-BRISTOL-MYERS SQUIBB COMPANY-2022-013713

PATIENT
  Age: 77 Year
  Sex: Female

DRUGS (8)
  1. LENALIDOMIDE [Suspect]
     Active Substance: LENALIDOMIDE
     Indication: Plasma cell myeloma
     Dosage: DOSE : UNAVAILABLE;     FREQ : UNAVAILABLE?PATIENT IS CURRENTLY ON CYCLE NUMBER: 1
     Route: 048
     Dates: start: 20211107, end: 20211203
  2. DEXAMETHASONE [Concomitant]
     Active Substance: DEXAMETHASONE
     Indication: Plasma cell myeloma
     Route: 048
     Dates: start: 20211117, end: 20211203
  3. DOMPERIDONE [Concomitant]
     Active Substance: DOMPERIDONE
     Indication: Plasma cell myeloma
     Dosage: TDS PRN
     Route: 048
     Dates: start: 20211117, end: 20211203
  4. ALLOPURINOL [Concomitant]
     Active Substance: ALLOPURINOL
     Indication: Plasma cell myeloma
     Dosage: OM
     Route: 048
     Dates: start: 20211117, end: 20211128
  5. OMEPRAZOLE [Concomitant]
     Active Substance: OMEPRAZOLE
     Indication: Plasma cell myeloma
     Dosage: OM
     Route: 048
     Dates: start: 20211117, end: 20211203
  6. FLUCONAZOLE [Concomitant]
     Active Substance: FLUCONAZOLE
     Indication: Plasma cell myeloma
     Route: 048
     Dates: start: 20211117, end: 20211203
  7. ASPIRIN [Concomitant]
     Active Substance: ASPIRIN
     Indication: Plasma cell myeloma
     Route: 048
     Dates: start: 20211117, end: 20211203
  8. COTRIMOXAZOLE [Concomitant]
     Active Substance: SULFAMETHOXAZOLE\TRIMETHOPRIM
     Indication: Plasma cell myeloma
     Route: 048
     Dates: start: 20211117, end: 20211203

REACTIONS (1)
  - Diverticulitis [Recovered/Resolved]

NARRATIVE: CASE EVENT DATE: 20211203
